FAERS Safety Report 15458636 (Version 1)
Quarter: 2018Q3

REPORT INFORMATION
  Report Type: Spontaneous
  Country: US (occurrence: US)
  Receive Date: 20180930
  Receipt Date: 20180930
  Transmission Date: 20181020
  Serious: Yes (Hospitalization, Disabling, Other)
  Sender: FDA-Public Use
  Company Number: None

PATIENT
  Age: 70 Year
  Sex: Male
  Weight: 130.05 kg

DRUGS (13)
  1. XTANDI [Suspect]
     Active Substance: ENZALUTAMIDE
     Indication: PROSTATE CANCER
     Dosage: ?          QUANTITY:4 CAPSULE(S);?
     Route: 048
     Dates: start: 20180901, end: 20180918
  2. METFORMIN 100MG [Concomitant]
  3. SIMVASTIN 40MG [Concomitant]
  4. ASPIRIN 81MG [Concomitant]
     Active Substance: ASPIRIN
  5. SAXAGLIPTIZ 2.5MG [Concomitant]
  6. GABAPENTIN. [Concomitant]
     Active Substance: GABAPENTIN
  7. IBUPROFEN 600MG [Concomitant]
     Active Substance: IBUPROFEN
  8. MORPHINE IMMEDIATE RELEASE [Concomitant]
  9. DIAZEPAM 10MG [Concomitant]
     Active Substance: DIAZEPAM
  10. DOCUSATE 100MG [Concomitant]
  11. MS CONTIN [Concomitant]
     Active Substance: MORPHINE SULFATE
  12. CALCIUM WITH VIT D 600MG [Concomitant]
  13. NORVASC [Concomitant]
     Active Substance: AMLODIPINE BESYLATE

REACTIONS (16)
  - Confusional state [None]
  - Impaired driving ability [None]
  - Disorientation [None]
  - Anal incontinence [None]
  - Asthenia [None]
  - Agitation [None]
  - Balance disorder [None]
  - Loss of personal independence in daily activities [None]
  - Mental status changes [None]
  - Personality change [None]
  - Hallucination [None]
  - Decreased appetite [None]
  - Motor dysfunction [None]
  - Urinary incontinence [None]
  - Cardiac failure congestive [None]
  - Peripheral swelling [None]

NARRATIVE: CASE EVENT DATE: 20180903
